FAERS Safety Report 10430688 (Version 2)
Quarter: 2014Q3

REPORT INFORMATION
  Report Type: Spontaneous
  Country: JP (occurrence: JP)
  Receive Date: 20140904
  Receipt Date: 20140905
  Transmission Date: 20150326
  Serious: Yes (Death, Other)
  Sender: FDA-Public Use
  Company Number: JP-BRISTOL-MYERS SQUIBB COMPANY-21343413

PATIENT
  Age: 95 Year
  Sex: Female
  Weight: 36 kg

DRUGS (1)
  1. ELIQUIS [Suspect]
     Active Substance: APIXABAN
     Dosage: TABLET.
     Route: 048
     Dates: start: 201406, end: 201408

REACTIONS (4)
  - Renal impairment [Unknown]
  - Dehydration [Unknown]
  - Death [Fatal]
  - Haematoma [Not Recovered/Not Resolved]

NARRATIVE: CASE EVENT DATE: 201408
